FAERS Safety Report 23223567 (Version 1)
Quarter: 2023Q4

REPORT INFORMATION
  Report Type: Spontaneous
  Country: US (occurrence: US)
  Receive Date: 20231124
  Receipt Date: 20231124
  Transmission Date: 20240110
  Serious: No
  Sender: FDA-Public Use
  Company Number: US-ABBVIE-5503790

PATIENT
  Age: 71 Year
  Sex: Male

DRUGS (1)
  1. BOTOX COSMETIC [Suspect]
     Active Substance: ONABOTULINUMTOXINA
     Indication: Skin wrinkling
     Dates: start: 20210701, end: 20230302

REACTIONS (1)
  - Injection site pustule [Not Recovered/Not Resolved]

NARRATIVE: CASE EVENT DATE: 20230622
